FAERS Safety Report 4282845-4 (Version None)
Quarter: 2004Q1

REPORT INFORMATION
  Report Type: 
  Country: None (occurrence: None)
  Receive Date: 20040130
  Receipt Date: 20030606
  Transmission Date: 20041129
  Serious: No
  Sender: FDA-Public Use
  Company Number: US-BRISTOL-MYERS SQUIBB COMPANY-12295861

PATIENT
  Age: 63 Year
  Sex: Male

DRUGS (1)
  1. SERZONE [Suspect]
     Indication: DEPRESSION
     Dosage: 100 MG BID UNTIL FEB-02 THEN INCREASED TO 150 MG BID MAY-03, INCREASED TO 250 MG  AM AND 150 MG PM
     Route: 048
     Dates: start: 19960101

REACTIONS (2)
  - DRUG INEFFECTIVE [None]
  - SOMNOLENCE [None]
